FAERS Safety Report 16937350 (Version 2)
Quarter: 2020Q4

REPORT INFORMATION
  Report Type: Spontaneous
  Country: JP (occurrence: JP)
  Receive Date: 20191018
  Receipt Date: 20201112
  Transmission Date: 20210113
  Serious: Yes (Death)
  Sender: FDA-Public Use
  Company Number: JP-ASTRAZENECA-2019SF43604

PATIENT
  Age: 46 Year
  Sex: Male

DRUGS (2)
  1. IMFINZI [Suspect]
     Active Substance: DURVALUMAB
     Indication: NON-SMALL CELL LUNG CANCER
     Route: 041
     Dates: start: 20190130, end: 20190315
  2. IMFINZI [Suspect]
     Active Substance: DURVALUMAB
     Indication: NON-SMALL CELL LUNG CANCER
     Route: 041
     Dates: start: 20190419, end: 20190419

REACTIONS (2)
  - Death [Fatal]
  - Pneumonia [Recovered/Resolved]

NARRATIVE: CASE EVENT DATE: 20190318
